FAERS Safety Report 5733604-4 (Version None)
Quarter: 2008Q2

REPORT INFORMATION
  Report Type: 
  Country: None (occurrence: None)
  Receive Date: 20080509
  Receipt Date: 20080429
  Transmission Date: 20081010
  Serious: Yes (Death)
  Sender: FDA-Public Use
  Company Number: US-PFIZER INC-2008037879

PATIENT
  Age: 93 Year
  Sex: Female
  Weight: 49.9 kg

DRUGS (2)
  1. ERAXIS [Suspect]
     Indication: SYSTEMIC CANDIDA
     Dosage: DAILY DOSE:100MG
     Route: 042
  2. DRUG, UNSPECIFIED [Concomitant]

REACTIONS (1)
  - RESPIRATORY FAILURE [None]
